FAERS Safety Report 6346767-7 (Version None)
Quarter: 2009Q3

REPORT INFORMATION
  Report Type: 
  Country: None (occurrence: None)
  Receive Date: 20090904
  Receipt Date: 20090820
  Transmission Date: 20100115
  Serious: Yes (Death)
  Sender: FDA-Public Use
  Company Number: 2009002529

PATIENT
  Age: 52 Year
  Sex: Male

DRUGS (4)
  1. TARCEVA [Suspect]
     Indication: LUNG ADENOCARCINOMA
     Dosage: MG, ORAL
     Route: 048
  2. BEVACIZUMAB (INJECTION FOR INFUSION) [Suspect]
     Indication: LUNG ADENOCARCINOMA
     Dosage: 10 MG/KG, INTRAVENOUS
     Route: 042
  3. CARBOPLATIN [Suspect]
     Indication: LUNG ADENOCARCINOMA
     Dosage: INTRAVENOUS
     Route: 042
  4. ETOPOSIDE [Suspect]
     Indication: LUNG ADENOCARCINOMA

REACTIONS (3)
  - ARTERIAL THROMBOSIS LIMB [None]
  - EXTREMITY NECROSIS [None]
  - TREATMENT FAILURE [None]
